FAERS Safety Report 22027800 (Version 1)
Quarter: 2023Q1

REPORT INFORMATION
  Report Type: Spontaneous
  Country: US (occurrence: None)
  Receive Date: 20230220
  Receipt Date: 20230220
  Transmission Date: 20230417
  Serious: Yes (Disabling)
  Sender: FDA-Public Use
  Company Number: None

PATIENT
  Age: 41 Year
  Sex: Female
  Weight: 67.5 kg

DRUGS (1)
  1. SUBOXONE [Suspect]
     Active Substance: BUPRENORPHINE HYDROCHLORIDE\NALOXONE HYDROCHLORIDE
     Indication: Drug therapy
     Dosage: OTHER QUANTITY : 3 FILM;?FREQUENCY : EVERY 8 HOURS;?
     Route: 060

REACTIONS (2)
  - Tooth abscess [None]
  - Dental caries [None]

NARRATIVE: CASE EVENT DATE: 20220601
